FAERS Safety Report 7381953-9 (Version None)
Quarter: 2011Q1

REPORT INFORMATION
  Report Type: 
  Country: None (occurrence: None)
  Receive Date: 20110329
  Receipt Date: 20110328
  Transmission Date: 20110831
  Serious: Yes (Other)
  Sender: FDA-Public Use
  Company Number: US-CEPHALON-2010005999

PATIENT
  Sex: Female

DRUGS (23)
  1. KLOR-CON [Concomitant]
     Dates: start: 20040701
  2. LISINOPRIL [Concomitant]
     Dates: start: 20040701
  3. ALIGN [Concomitant]
     Dates: start: 20101001
  4. PREMARIN [Concomitant]
     Dates: start: 20051201
  5. HYOSCYAMINE [Concomitant]
     Dates: start: 20100701
  6. FUROSEMIDE [Concomitant]
     Dates: start: 20040701
  7. MULTIVITAMIN [Concomitant]
  8. PEPCID [Concomitant]
  9. CHOLESTYRAMINE [Concomitant]
     Dates: start: 20100701
  10. NUVIGIL [Suspect]
     Route: 048
     Dates: start: 20100701
  11. TUMS [Concomitant]
  12. NUVIGIL [Suspect]
     Indication: HYPERSOMNIA
     Route: 048
     Dates: start: 20100201, end: 20100701
  13. CARVEDILOL [Concomitant]
     Dates: start: 20040701
  14. SPIRONOLACTONE [Concomitant]
     Dates: start: 20060401
  15. ZANTAC [Concomitant]
     Dates: start: 20100701
  16. SIMVASTATIN [Concomitant]
     Dates: start: 20070101
  17. FEXOFENADINE [Concomitant]
     Dates: start: 20091201
  18. TYLENOL (CAPLET) [Concomitant]
  19. DEXLANSOPRAZOLE [Concomitant]
     Dates: start: 20100406
  20. PROTONIX [Concomitant]
     Dates: start: 20100201
  21. ASPIRIN [Concomitant]
     Dates: start: 20040701
  22. FLUTICASONE PROPIONATE [Concomitant]
     Dates: start: 20091201
  23. DIPHENOXYLATE [Concomitant]
     Dates: start: 20100501

REACTIONS (7)
  - ACCIDENTAL EXPOSURE [None]
  - DYSKINESIA [None]
  - IRRITABLE BOWEL SYNDROME [None]
  - INTENTIONAL DRUG MISUSE [None]
  - BRUXISM [None]
  - DIARRHOEA [None]
  - DRUG TOLERANCE [None]
